FAERS Safety Report 9779142 (Version 3)
Quarter: 2014Q2

REPORT INFORMATION
  Report Type: Spontaneous
  Country: US (occurrence: US)
  Receive Date: 20131223
  Receipt Date: 20140610
  Transmission Date: 20141212
  Serious: Yes (Hospitalization)
  Sender: FDA-Public Use
  Company Number: US-B.I. PHARMACEUTICALS,INC./RIDGEFIELD-2013-BI-43294BP

PATIENT
  Sex: Male
  Weight: 70.65 kg

DRUGS (14)
  1. PRADAXA [Suspect]
     Indication: ANTICOAGULANT THERAPY
     Dosage: 300 MG
     Route: 048
     Dates: start: 20110112, end: 20110204
  2. PRADAXA [Suspect]
     Indication: ATRIAL FIBRILLATION
  3. DIGOXIN [Concomitant]
     Dosage: 0.125 MG
     Route: 048
  4. DULCOLAX [Concomitant]
     Route: 048
  5. MAXZIDE [Concomitant]
     Indication: FLUID IMBALANCE
     Dosage: DOSE PER APPLICATION AND DAILY DOSE: 50-75MG,
     Route: 048
  6. HYDROXYZINE [Concomitant]
     Route: 048
  7. LASIX [Concomitant]
     Indication: FLUID IMBALANCE
     Dosage: DAILY DOSE: ONE HALF DAILY
     Route: 048
  8. LOVASTATIN [Concomitant]
     Route: 048
  9. LOVASTATIN [Concomitant]
     Dosage: DOSE PER APPLICATION: 10 MG
     Route: 065
  10. MULTIVITAMIN [Concomitant]
     Route: 065
  11. PERFOROMIST [Concomitant]
     Dosage: DOSE PER APPLICATION: 20 MCG/ 2 ML,
     Route: 065
  12. PULMICORT [Concomitant]
     Dosage: 1 MG
     Route: 065
  13. TOPROL XL [Concomitant]
     Indication: CARDIAC DISORDER
     Dosage: DAILY DOSE: ONE HALF DAILY
     Route: 048
  14. TOPROL XL [Concomitant]
     Indication: BLOOD PRESSURE MANAGEMENT

REACTIONS (2)
  - Upper gastrointestinal haemorrhage [Unknown]
  - Haemorrhagic anaemia [Unknown]
